FAERS Safety Report 11156637 (Version 1)
Quarter: 2015Q2

REPORT INFORMATION
  Report Type: Report from Study
  Country: FR (occurrence: FR)
  Receive Date: 20150602
  Receipt Date: 20150602
  Transmission Date: 20150821
  Serious: Yes (Hospitalization, Other)
  Sender: FDA-Public Use
  Company Number: FR-GLAXOSMITHKLINE-FR2015GSK075449

PATIENT
  Age: 79 Year
  Sex: Male

DRUGS (11)
  1. SEMI-DAONIL [Concomitant]
  2. OMEGA-3-ACID ETHYL ESTERS. [Suspect]
     Active Substance: OMEGA-3-ACID ETHYL ESTERS
     Indication: ISCHAEMIC HEART DISEASE PROPHYLAXIS
     Dosage: UNK
     Dates: start: 20071218
  3. TAREG [Concomitant]
     Active Substance: VALSARTAN
  4. CRESTOR [Concomitant]
     Active Substance: ROSUVASTATIN CALCIUM
  5. PLAVIX [Concomitant]
     Active Substance: CLOPIDOGREL BISULFATE
  6. CARDENSIEL [Concomitant]
     Active Substance: BISOPROLOL FUMARATE
  7. KARDEGIC [Concomitant]
     Active Substance: ASPIRIN LYSINE
  8. CORDARONE [Concomitant]
     Active Substance: AMIODARONE HYDROCHLORIDE
  9. NOVOMIX [Concomitant]
     Active Substance: INSULIN ASPART
  10. LASILIX [Concomitant]
     Active Substance: FUROSEMIDE
  11. DIAMICRON [Concomitant]
     Active Substance: GLICLAZIDE

REACTIONS (1)
  - Pulmonary oedema [Unknown]

NARRATIVE: CASE EVENT DATE: 201112
